FAERS Safety Report 9018533 (Version 3)
Quarter: 2014Q1

REPORT INFORMATION
  Report Type: Spontaneous
  Country: US (occurrence: US)
  Receive Date: 20130118
  Receipt Date: 20140210
  Transmission Date: 20141002
  Serious: Yes (Other)
  Sender: FDA-Public Use
  Company Number: US-PFIZER INC-2013018826

PATIENT
  Age: 57 Year
  Sex: Female

DRUGS (15)
  1. TIGAN [Suspect]
     Dosage: UNK
  2. VISTARIL [Suspect]
     Dosage: UNK
  3. CODEINE [Suspect]
     Dosage: UNK
  4. PSEUDOEPHEDRINE HYDROCHLORIDE [Suspect]
     Dosage: UNK
  5. REGLAN [Suspect]
     Dosage: UNK
  6. COMPAZINE [Suspect]
     Dosage: UNK
  7. IRON [Suspect]
     Dosage: UNK
  8. DEMEROL [Suspect]
     Dosage: UNK
  9. DURAGESIC [Suspect]
     Dosage: UNK
  10. WYGESIC [Suspect]
     Dosage: UNK
  11. ZOFRAN [Suspect]
     Dosage: UNK
  12. PHENERGAN [Suspect]
     Dosage: UNK
  13. HYDROCODONE [Suspect]
     Dosage: UNK
  14. ULTRAM [Suspect]
  15. DONNATAL [Suspect]

REACTIONS (1)
  - Anaphylactic reaction [Unknown]
